FAERS Safety Report 5221629-7 (Version None)
Quarter: 2007Q1

REPORT INFORMATION
  Report Type: 
  Country: None (occurrence: None)
  Receive Date: 20070126
  Receipt Date: 20070126
  Transmission Date: 20070707
  Serious: Yes (Death)
  Sender: FDA-Public Use
  Company Number: None

PATIENT
  Sex: Male
  Weight: 67.5406 kg

DRUGS (1)
  1. CETUXIMAB 400MG/ M2 [Suspect]
     Indication: BILE DUCT CANCER
     Dosage: 400 MG/M2 WEEKLY IV
     Route: 042
     Dates: start: 20061206, end: 20061213

REACTIONS (1)
  - DISEASE PROGRESSION [None]
